FAERS Safety Report 15451049 (Version 1)
Quarter: 2018Q4

REPORT INFORMATION
  Report Type: Spontaneous
  Country: DE (occurrence: DE)
  Receive Date: 20181001
  Receipt Date: 20181001
  Transmission Date: 20190204
  Serious: Yes (Other)
  Sender: FDA-Public Use
  Company Number: PHHY2018DE107400

PATIENT
  Age: 2 Year

DRUGS (6)
  1. METHYLPREDNISOLONE. [Suspect]
     Active Substance: METHYLPREDNISOLONE
     Indication: C3 GLOMERULOPATHY
     Dosage: 500 MG/M2, UNK
     Route: 065
  2. RITUXIMAB. [Suspect]
     Active Substance: RITUXIMAB
     Indication: C3 GLOMERULOPATHY
     Route: 065
  3. MYCOPHENOLATE MOFETIL. [Suspect]
     Active Substance: MYCOPHENOLATE MOFETIL
     Indication: C3 GLOMERULOPATHY
     Dosage: 600 MG/M2, BID
     Route: 065
  4. TACROLIMUS. [Suspect]
     Active Substance: TACROLIMUS
     Indication: C3 GLOMERULOPATHY
     Route: 065
  5. ECULIZUMAB [Suspect]
     Active Substance: ECULIZUMAB
     Indication: C3 GLOMERULOPATHY
     Route: 065
  6. PREDNISONE. [Suspect]
     Active Substance: PREDNISONE
     Indication: C3 GLOMERULOPATHY
     Dosage: 60 MG/M2, UNK
     Route: 048

REACTIONS (2)
  - Product use in unapproved indication [Unknown]
  - End stage renal disease [Unknown]
